FAERS Safety Report 5191039-X (Version None)
Quarter: 2006Q4

REPORT INFORMATION
  Report Type: 
  Country: None (occurrence: None)
  Receive Date: 20061226
  Receipt Date: 20061213
  Transmission Date: 20070319
  Serious: Yes (Disabling, Other)
  Sender: FDA-Public Use
  Company Number: 2006GB02314

PATIENT
  Age: 62 Year
  Sex: Male
  Weight: 75 kg

DRUGS (2)
  1. LISINOPRIL [Suspect]
     Indication: HYPERTENSION
     Route: 048
     Dates: start: 20020401, end: 20060825
  2. BUDESONIDE [Concomitant]
     Indication: ASTHMA
     Route: 055

REACTIONS (2)
  - HYPERSENSITIVITY [None]
  - RASH MACULO-PAPULAR [None]
